FAERS Safety Report 15670126 (Version 1)
Quarter: 2018Q4

REPORT INFORMATION
  Report Type: Spontaneous
  Country: US (occurrence: US)
  Receive Date: 20181129
  Receipt Date: 20181129
  Transmission Date: 20190205
  Serious: Yes (Life-Threatening, Hospitalization)
  Sender: FDA-Public Use
  Company Number: US-TEVA-2018-US-980596

PATIENT
  Age: 41 Year
  Sex: Female

DRUGS (1)
  1. POTASSIUM CHLORIDE. [Suspect]
     Active Substance: POTASSIUM CHLORIDE
     Indication: SUICIDE ATTEMPT
     Dosage: UP TO 80 EXTENDED RELEASE TABLETS
     Route: 048

REACTIONS (8)
  - Hyperkalaemia [Recovered/Resolved]
  - Electrocardiogram QRS complex prolonged [Recovered/Resolved]
  - Apnoea [Recovered/Resolved]
  - Intentional overdose [Unknown]
  - Pulse absent [Recovered/Resolved]
  - Suicide attempt [Recovered/Resolved]
  - Electrocardiogram T wave peaked [Recovered/Resolved]
  - Bradycardia [Recovered/Resolved]
